FAERS Safety Report 6093249-6 (Version None)
Quarter: 2009Q1

REPORT INFORMATION
  Report Type: 
  Country: None (occurrence: None)
  Receive Date: 20090224
  Receipt Date: 20090224
  Transmission Date: 20090719
  Serious: No
  Sender: FDA-Public Use
  Company Number: None

PATIENT
  Sex: Female
  Weight: 66.36 kg

DRUGS (1)
  1. GABAPENTIN [Suspect]
     Dosage: 100MG CAPSULE 300 MG TID ORAL
     Route: 048
     Dates: start: 20080722, end: 20090223

REACTIONS (1)
  - DEPRESSION [None]
